FAERS Safety Report 6941495-9 (Version None)
Quarter: 2010Q3

REPORT INFORMATION
  Report Type: 
  Country: None (occurrence: None)
  Receive Date: 20100825
  Receipt Date: 20100804
  Transmission Date: 20110219
  Serious: Yes (Disabling)
  Sender: FDA-Public Use
  Company Number: PHHO2008NL02165

PATIENT
  Sex: Male
  Weight: 90 kg

DRUGS (2)
  1. CERTICAN [Suspect]
     Indication: LIVER TRANSPLANT
     Dosage: 4 MG, QD
     Route: 048
     Dates: start: 20070503
  2. METOPROLOL [Concomitant]
     Indication: HYPERTENSION
     Route: 048

REACTIONS (4)
  - MACULAR OEDEMA [None]
  - PAPILLOEDEMA [None]
  - RETINAL HAEMORRHAGE [None]
  - VISUAL ACUITY REDUCED [None]
